FAERS Safety Report 7623177-3 (Version None)
Quarter: 2011Q3

REPORT INFORMATION
  Report Type: 
  Country: None (occurrence: None)
  Receive Date: 20110720
  Receipt Date: 20110712
  Transmission Date: 20111222
  Serious: Yes (Other)
  Sender: FDA-Public Use
  Company Number: PHHO2011BE11007

PATIENT
  Age: 38 Year
  Sex: Male
  Weight: 61.5 kg

DRUGS (3)
  1. NEORAL [Suspect]
  2. VORICONAZOLE [Concomitant]
     Dosage: 300 MG, BID
     Route: 048
     Dates: start: 20090314, end: 20090418
  3. VORICONAZOLE [Concomitant]
     Indication: ASPERGILLOSIS
     Dosage: 300 MG, QD
     Route: 048
     Dates: start: 20090313, end: 20090313

REACTIONS (1)
  - THROMBOTIC THROMBOCYTOPENIC PURPURA [None]
